FAERS Safety Report 23733803 (Version 1)
Quarter: 2024Q2

REPORT INFORMATION
  Report Type: Other
  Country: CA (occurrence: CA)
  Receive Date: 20240412
  Receipt Date: 20240412
  Transmission Date: 20240716
  Serious: Yes (Other)
  Sender: FDA-Public Use
  Company Number: CA-BIOCON BIOLOGICS LIMITED-BBL2024002256

PATIENT

DRUGS (21)
  1. TRASTUZUMAB [Suspect]
     Active Substance: TRASTUZUMAB
     Indication: Breast cancer metastatic
     Dosage: 456 MILLIGRAM,1 EVERY 3 WEEKS
     Route: 065
  2. TRASTUZUMAB [Suspect]
     Active Substance: TRASTUZUMAB
     Dosage: 360 MILLIGRAM,1 EVERY 6 WEEKS
  3. TRASTUZUMAB [Suspect]
     Active Substance: TRASTUZUMAB
     Dosage: 342 MILLIGRAM,1 EVERY 3 WEEKS
  4. TRASTUZUMAB [Suspect]
     Active Substance: TRASTUZUMAB
     Dosage: 342 MILLIGRAM,1 EVERY 4 WEEKS
  5. TRASTUZUMAB [Suspect]
     Active Substance: TRASTUZUMAB
     Dosage: 342 MILLIGRAM,1 EVERY 3 WEEKS
  6. TRASTUZUMAB [Suspect]
     Active Substance: TRASTUZUMAB
     Dosage: 396 MILLIGRAM,1 EVERY 3 WEEKS
  7. AMLODIPINE [Concomitant]
     Active Substance: AMLODIPINE BESYLATE
     Dosage: 10 MILLIGRAM
     Route: 048
  8. CAPECITABINE [Concomitant]
     Active Substance: CAPECITABINE
     Dosage: 500 MILLIGRAM,2 EVERY 1 DAYS
     Route: 048
  9. RAMIPRIL [Concomitant]
     Active Substance: RAMIPRIL
     Dosage: 5 MILLIGRAM,1 EVERY 1 DAYS
  10. FASLODEX [Concomitant]
     Active Substance: FULVESTRANT
     Route: 030
  11. GABAPENTIN [Concomitant]
     Active Substance: GABAPENTIN
     Dosage: 200 MILLIGRAM,3 EVERY 1 DAYS
     Route: 065
  12. IBRANCE [Concomitant]
     Active Substance: PALBOCICLIB
  13. AFINITOR [Concomitant]
     Active Substance: EVEROLIMUS
  14. ATIVAN [Concomitant]
     Active Substance: LORAZEPAM
  15. ROSUVASTATIN CALCIUM [Concomitant]
     Active Substance: ROSUVASTATIN CALCIUM
  16. NINTEDANIB [Concomitant]
     Active Substance: NINTEDANIB
  17. VALSARTAN [Concomitant]
     Active Substance: VALSARTAN
     Dosage: 80 MILLIGRAM,1 EVERY 1 DAYS
     Route: 048
  18. ZOLEDRONIC ACID [Concomitant]
     Active Substance: ZOLEDRONIC ACID
     Dosage: 1 EVERY 1 YEARS
  19. ANASTROZOLE [Concomitant]
     Active Substance: ANASTROZOLE
     Dosage: 1 MILLIGRAM,1 EVERY 1 DAYS
  20. TAMOXIFEN [Concomitant]
     Active Substance: TAMOXIFEN
  21. CANNABIS SATIVA FLOWERING TOP [Concomitant]
     Active Substance: CANNABIS SATIVA FLOWERING TOP

REACTIONS (2)
  - Pulmonary oedema [Unknown]
  - Lung disorder [Unknown]
